FAERS Safety Report 11270915 (Version 5)
Quarter: 2019Q1

REPORT INFORMATION
  Report Type: Spontaneous
  Country: US (occurrence: US)
  Receive Date: 20150714
  Receipt Date: 20190102
  Transmission Date: 20190417
  Serious: No
  Sender: FDA-Public Use
  Company Number: US-PFIZER INC-2015149915

PATIENT
  Age: 54 Year
  Sex: Female

DRUGS (29)
  1. REVATIO [Suspect]
     Active Substance: SILDENAFIL CITRATE
     Indication: PULMONARY ARTERIAL HYPERTENSION
     Dosage: 60 MG, 3X/DAY (TAKE 3 TABLET BY ORAL ROUTE 3 TIMES EVERY DAY)
     Route: 048
  2. SENNA [Concomitant]
     Active Substance: SENNA LEAF\SENNOSIDES\SENNOSIDES A AND B
     Dosage: 8.6 MG, 1 CAPSULE BY ORAL ROUTE EVERY DAY AT BEDTIME AS NEEDED (PRN)
     Route: 048
  3. LASIX [Concomitant]
     Active Substance: FUROSEMIDE
     Indication: OEDEMA
  4. REVATIO [Suspect]
     Active Substance: SILDENAFIL CITRATE
     Indication: PULMONARY ARTERIAL HYPERTENSION
     Dosage: 80 MG, 3X/DAY (TAKE 4 TABLET PO THRICE A DAY)
     Route: 048
  5. SYMBICORT [Concomitant]
     Active Substance: BUDESONIDE\FORMOTEROL FUMARATE DIHYDRATE
     Dosage: 2 DF, UNK (Q12 HRS)
  6. LANTUS SOLOSTAR [Concomitant]
     Active Substance: INSULIN GLARGINE
     Indication: TYPE 2 DIABETES MELLITUS
     Dosage: INJECTION 100 UNIT/ML (3 ML) INJECT BY SUBCUTANEOUS ROUTE AS PER INSULIN PROTOCOL; 16 UNITS AT HS
     Route: 058
     Dates: start: 201408
  7. ASCORBIC ACID. [Concomitant]
     Active Substance: ASCORBIC ACID
     Dosage: 500 MG, 2X/DAY
     Route: 048
     Dates: start: 2003
  8. IRON [Concomitant]
     Active Substance: IRON
     Dosage: 325 MG, BID QD
     Dates: start: 201407
  9. PAROXETINE HCL [Concomitant]
     Active Substance: PAROXETINE HYDROCHLORIDE
     Dosage: 40 MG, DAILY (40 MG QAM)
     Route: 048
     Dates: start: 2003
  10. MAGNESIUM OXIDE. [Concomitant]
     Active Substance: MAGNESIUM OXIDE
     Dosage: 400 MG, TAKE ONE TABLET BY MOUTH DAILY
     Route: 048
     Dates: start: 201407
  11. TYLENOL EXTRA STRENGTH [Concomitant]
     Active Substance: ACETAMINOPHEN
     Dosage: ), 500 MG; TAKE 2 TABLET BY ORAL ROUTE EVERY 6 HOURS AS NEEDED
     Route: 048
  12. BENADRYL [Concomitant]
     Active Substance: DIPHENHYDRAMINE HYDROCHLORIDE
     Indication: NASAL CONGESTION
     Dosage: 1-2 TABS AT BEDTIME (HS)
     Dates: start: 2003
  13. TRAMADOL. [Concomitant]
     Active Substance: TRAMADOL
     Indication: ARTHRITIS
     Dosage: 1 DF, AS NEEDED
     Dates: start: 201409
  14. POTASSIUM CHLORIDE. [Concomitant]
     Active Substance: POTASSIUM CHLORIDE
     Dosage: 20 MEQ, 1X/DAY (TAKE 1 TABLET)
     Route: 048
     Dates: start: 2003
  15. IRON [Concomitant]
     Active Substance: IRON
     Dosage: 2 TABLET BY ORAL ROUTE EVERY DAY
     Route: 048
  16. ACAI Z GEL [Concomitant]
     Dosage: 2 DF, 1X/DAY
     Dates: start: 2014
  17. TRAMADOL. [Concomitant]
     Active Substance: TRAMADOL
     Indication: ARTHRALGIA
     Dosage: 50 MG, AS NEEDED
  18. ZESTRIL [Concomitant]
     Active Substance: LISINOPRIL
     Indication: RENAL DISORDER
     Dosage: 2.5 MG, 1X/DAY
     Dates: start: 20150302
  19. ASPIRIN. [Concomitant]
     Active Substance: ASPIRIN
     Dosage: 325 MG, 1X/DAY
     Route: 048
     Dates: start: 2003
  20. PRAVASTATIN SODIUM. [Concomitant]
     Active Substance: PRAVASTATIN SODIUM
     Dosage: 40 MG, 1 TABLET BY ORAL ROUTE EVERY DAY, AT 8 PM
     Route: 048
     Dates: start: 2003
  21. PROAIR HFA [Concomitant]
     Active Substance: ALBUTEROL SULFATE
     Dosage: 90 MCG, 2 PUFF BY INHALATION ROUTE EVERY 6-8 HOURS AS NEEDED (RESCUE INHALER)
  22. MULTIVITAMINS [Concomitant]
     Active Substance: VITAMINS
     Dosage: 1 TABLET BY ORAL ROUTE EVERY DAY WITH FOOD
     Route: 048
  23. REVATIO [Suspect]
     Active Substance: SILDENAFIL CITRATE
     Indication: PULMONARY HYPERTENSION
     Dosage: 20 MG, THREE TIMES A DAY, 6 HOURS APART
     Route: 048
     Dates: start: 201409
  24. PAXIL [Suspect]
     Active Substance: PAROXETINE HYDROCHLORIDE
     Dosage: UNK
  25. LASIX [Concomitant]
     Active Substance: FUROSEMIDE
     Indication: CARDIAC FAILURE CONGESTIVE
     Dosage: 1 TABLET BY ORAL ROUTE EVERY DAY
     Dates: start: 2014
  26. FLONASE [Concomitant]
     Active Substance: FLUTICASONE PROPIONATE
     Dosage: 50 MCG 2 SPRAY BY INTRANASAL ROUTE EVERY DAY IN EACH NOSTRIL, AT BEDTIME (HS)
     Route: 045
     Dates: start: 2003
  27. VITAMIN D [Concomitant]
     Active Substance: CHOLECALCIFEROL
     Dosage: 400 UNIT, TAKE 3000 UNIT CAPSULE BY MOUTH DAILY
     Route: 048
     Dates: start: 2014
  28. CRANBERRY. [Concomitant]
     Active Substance: CRANBERRY
     Dosage: 84 MG, DAILY
     Route: 048
     Dates: start: 201407
  29. O2 [Concomitant]
     Active Substance: OXYGEN
     Indication: CHRONIC OBSTRUCTIVE PULMONARY DISEASE
     Dosage: NASAL CANULA 4L AT REST INCREASED TO 6 L WITH ACTIVITY AND WITH BIPAP 23/18 AT HS
     Dates: start: 201406

REACTIONS (3)
  - Product use issue [Unknown]
  - Nasopharyngitis [Unknown]
  - Epistaxis [Not Recovered/Not Resolved]

NARRATIVE: CASE EVENT DATE: 201411
